FAERS Safety Report 9393134 (Version 1)
Quarter: 2013Q3

REPORT INFORMATION
  Report Type: Report from Study
  Country: US (occurrence: US)
  Receive Date: 20130710
  Receipt Date: 20130710
  Transmission Date: 20140515
  Serious: Yes (Congenital Anomaly, Other)
  Sender: FDA-Public Use
  Company Number: US-ELI_LILLY_AND_COMPANY-US201208001791

PATIENT
  Age: 0 Year
  Sex: 0

DRUGS (7)
  1. DULOXETINE HYDROCHLORIDE [Suspect]
     Dosage: 60 MG, QD
     Route: 015
     Dates: end: 201204
  2. PROMETRIUM [Concomitant]
     Dosage: UNK, QD
     Route: 015
     Dates: start: 20111018
  3. PROMETRIUM [Concomitant]
     Dosage: 200 MG, QD
     Route: 063
  4. PRENATAL VITAMINS                  /01549301/ [Concomitant]
     Dosage: UNK, QD
     Route: 015
     Dates: start: 20111018
  5. PRENATAL VITAMINS                  /01549301/ [Concomitant]
     Dosage: UNK, QD
     Route: 063
  6. VITAMIN D [Concomitant]
     Dosage: 2000 IU, QD
     Route: 015
  7. VITAMIN D [Concomitant]
     Dosage: 2000 UNK, QD
     Route: 063

REACTIONS (10)
  - Trisomy 21 [Not Recovered/Not Resolved]
  - Atrial septal defect [Not Recovered/Not Resolved]
  - Atrial septal defect [Not Recovered/Not Resolved]
  - Ventricular septal defect [Not Recovered/Not Resolved]
  - Patent ductus arteriosus [Not Recovered/Not Resolved]
  - Tricuspid valve incompetence [Not Recovered/Not Resolved]
  - Foetal exposure during pregnancy [Recovered/Resolved]
  - Motor developmental delay [Unknown]
  - Speech disorder developmental [Unknown]
  - Mental disability [Unknown]
